FAERS Safety Report 6375953-5 (Version None)
Quarter: 2009Q3

REPORT INFORMATION
  Report Type: 
  Country: None (occurrence: None)
  Receive Date: 20090924
  Receipt Date: 20090915
  Transmission Date: 20100115
  Serious: Yes (Hospitalization)
  Sender: FDA-Public Use
  Company Number: BR-ASTRAZENECA-2006UW13312

PATIENT
  Age: 85 Year
  Sex: Male
  Weight: 60 kg

DRUGS (5)
  1. CASODEX [Suspect]
     Indication: PROSTATE CANCER
     Route: 048
     Dates: start: 19960101
  2. CARDIZEM [Concomitant]
     Dosage: TWO TIMES A DAY
     Route: 048
     Dates: start: 19940101
  3. VASTAREL [Concomitant]
     Dosage: TWO TIMES A DAY
     Route: 048
     Dates: start: 20000101
  4. CAPTOPRIL [Concomitant]
     Dosage: DAILY
     Route: 048
     Dates: start: 19940101
  5. ASPIRIN [Concomitant]
     Indication: THROMBOSIS PROPHYLAXIS
     Route: 048
     Dates: start: 19940101, end: 20090801

REACTIONS (5)
  - ALOPECIA [None]
  - ANAL HAEMORRHAGE [None]
  - HYPERTRICHOSIS [None]
  - PROSTATE INDURATION [None]
  - PROSTATIC SPECIFIC ANTIGEN INCREASED [None]
